FAERS Safety Report 6110997-X (Version None)
Quarter: 2009Q1

REPORT INFORMATION
  Report Type: 
  Country: None (occurrence: None)
  Receive Date: 20090311
  Receipt Date: 20090304
  Transmission Date: 20090719
  Serious: Yes (Death)
  Sender: FDA-Public Use
  Company Number: US-ROCHE-618630

PATIENT
  Sex: Male

DRUGS (9)
  1. KLONOPIN [Suspect]
     Indication: AGORAPHOBIA
     Dosage: FORM: TABLET SOLUBLE
     Route: 048
     Dates: start: 20070101
  2. PAXIL [Suspect]
     Indication: DEPRESSION
     Route: 048
     Dates: start: 20050101
  3. ETHANOL [Suspect]
     Indication: DRUG USE FOR UNKNOWN INDICATION
     Dosage: VARIABLE DOSE
     Route: 065
  4. ATIVAN [Suspect]
     Indication: ANXIETY
     Route: 048
     Dates: start: 20070101
  5. CYCLOBENZAPRINE HCL [Suspect]
     Indication: DRUG USE FOR UNKNOWN INDICATION
     Route: 048
  6. REMERON [Suspect]
     Indication: DEPRESSION
     Route: 048
     Dates: start: 20070101
  7. SEROQUEL [Suspect]
     Indication: PSYCHOTIC DISORDER
     Route: 048
     Dates: start: 20050101
  8. TRAMADOL [Suspect]
     Indication: DRUG USE FOR UNKNOWN INDICATION
     Route: 048
  9. METOPROLOL [Suspect]
     Indication: DRUG USE FOR UNKNOWN INDICATION
     Route: 048

REACTIONS (1)
  - COMPLETED SUICIDE [None]
